FAERS Safety Report 19224914 (Version 1)
Quarter: 2021Q2

REPORT INFORMATION
  Report Type: Spontaneous
  Country: FR (occurrence: FR)
  Receive Date: 20210506
  Receipt Date: 20210506
  Transmission Date: 20210717
  Serious: Yes (Other)
  Sender: FDA-Public Use
  Company Number: FR-TEVA-2021-FR-1907492

PATIENT
  Age: 64 Year
  Sex: Female
  Weight: 59 kg

DRUGS (6)
  1. IMOVANE [Concomitant]
     Active Substance: ZOPICLONE
  2. GRANOCYTE [Concomitant]
     Active Substance: LENOGRASTIM
  3. FOLINATE [Concomitant]
     Active Substance: LEUCOVORIN CALCIUM
  4. FLUOROURACILE [Suspect]
     Active Substance: FLUOROURACIL
     Indication: SQUAMOUS CELL CARCINOMA
     Dosage: 3850 MG
     Route: 042
     Dates: start: 20210311, end: 20210311
  5. ZOPHREN [Concomitant]
     Active Substance: ONDANSETRON
  6. OXALIPLATINE [Concomitant]
     Active Substance: OXALIPLATIN

REACTIONS (4)
  - Hypertension [Recovered/Resolved]
  - Paraesthesia [Recovered/Resolved]
  - Tachycardia [Recovered/Resolved]
  - Dyspnoea [Recovered/Resolved]

NARRATIVE: CASE EVENT DATE: 20210311
